FAERS Safety Report 10167327 (Version 2)
Quarter: 2014Q2

REPORT INFORMATION
  Report Type: Spontaneous
  Country: US (occurrence: US)
  Receive Date: 20140512
  Receipt Date: 20140521
  Transmission Date: 20141212
  Serious: Yes (Hospitalization)
  Sender: FDA-Public Use
  Company Number: US-DYAX CORP.-2014DX000052

PATIENT
  Age: 35 Year
  Sex: Female
  Weight: 131.66 kg

DRUGS (15)
  1. KALBITOR [Suspect]
     Indication: HEREDITARY ANGIOEDEMA
     Route: 058
     Dates: start: 20140423, end: 20140423
  2. KALBITOR [Suspect]
     Route: 058
     Dates: start: 201307
  3. FIRAZYR [Concomitant]
     Indication: HEREDITARY ANGIOEDEMA
     Route: 058
  4. BERINERT [Concomitant]
     Indication: HEREDITARY ANGIOEDEMA
     Route: 065
  5. LEVOTHYROXINE [Concomitant]
     Indication: THYROID DISORDER
     Route: 048
     Dates: start: 2004
  6. OMEPRAZOLE [Concomitant]
     Indication: GASTROOESOPHAGEAL REFLUX DISEASE
     Route: 048
     Dates: start: 2010
  7. LEXAPRO [Concomitant]
     Indication: ANXIETY
     Route: 048
     Dates: start: 2011
  8. OXCARBAZEPINE [Concomitant]
     Indication: ANXIETY
     Route: 048
     Dates: start: 2012
  9. BROMOCRIPTINE MESYLATE [Concomitant]
     Indication: BRAIN NEOPLASM
     Route: 048
     Dates: start: 2010
  10. SEROQUEL XR [Concomitant]
     Indication: PRODUCT USED FOR UNKNOWN INDICATION
     Route: 048
     Dates: start: 2010
  11. VITAMIN D [Concomitant]
     Indication: PRODUCT USED FOR UNKNOWN INDICATION
     Route: 048
  12. ZYRTEC [Concomitant]
     Indication: HYPERSENSITIVITY
     Route: 048
     Dates: start: 2009
  13. DULERA [Concomitant]
     Indication: PRODUCT USED FOR UNKNOWN INDICATION
     Route: 065
     Dates: start: 201310
  14. CELEXA [Concomitant]
     Indication: PRODUCT USED FOR UNKNOWN INDICATION
     Route: 048
     Dates: start: 201402
  15. QUETIAPINE FUMARATE [Concomitant]
     Indication: PRODUCT USED FOR UNKNOWN INDICATION
     Route: 048
     Dates: start: 2010

REACTIONS (3)
  - Hereditary angioedema [Recovering/Resolving]
  - Injection site pain [Recovering/Resolving]
  - Off label use [Unknown]
